FAERS Safety Report 9827942 (Version 1)
Quarter: 2014Q1

REPORT INFORMATION
  Report Type: Spontaneous
  Country: IT (occurrence: IT)
  Receive Date: 20140117
  Receipt Date: 20140117
  Transmission Date: 20141002
  Serious: Yes (Hospitalization)
  Sender: FDA-Public Use
  Company Number: IT-BAYER-2014-007785

PATIENT
  Age: 95 Year
  Sex: Female

DRUGS (4)
  1. CARDIOASPIRIN [Suspect]
     Dosage: DAILY DOSE 100 MG
     Route: 048
     Dates: end: 20131223
  2. VOLTAREN [Suspect]
     Indication: PAIN
     Dosage: UNK
     Dates: start: 20131223
  3. VOLTAREN [Suspect]
     Indication: PAIN
     Dosage: UNK, PRN
     Dates: start: 20140102
  4. EPINEPHRINE [Suspect]

REACTIONS (4)
  - Anaemia [Recovering/Resolving]
  - Duodenal ulcer [Recovering/Resolving]
  - Gastrooesophageal reflux disease [Recovering/Resolving]
  - Melaena [Recovering/Resolving]
